FAERS Safety Report 9098383 (Version 1)
Quarter: 2013Q1

REPORT INFORMATION
  Report Type: Report from Study
  Country: JP (occurrence: JP)
  Receive Date: 20130213
  Receipt Date: 20130213
  Transmission Date: 20140127
  Serious: Yes (Hospitalization)
  Sender: FDA-Public Use
  Company Number: PHHO2013JP002061

PATIENT
  Age: 80 Year
  Sex: Male
  Weight: 45 kg

DRUGS (14)
  1. ALISKIREN [Suspect]
     Indication: CARDIAC FAILURE CHRONIC
     Dosage: UNK
     Route: 048
     Dates: start: 20091023
  2. SALOBEL [Concomitant]
     Indication: HYPERURICAEMIA
     Dosage: 100 MG
     Route: 048
     Dates: start: 19991125
  3. CIBENOL [Concomitant]
     Indication: VENTRICULAR EXTRASYSTOLES
     Dosage: 200 MG
     Route: 048
     Dates: start: 19990513
  4. PATYUNA [Concomitant]
     Indication: THROMBOSIS PROPHYLAXIS
     Dosage: 200 MG
     Dates: start: 20000331
  5. NORVASC [Concomitant]
     Indication: HYPERTENSION
     Dosage: 5MG
     Route: 048
     Dates: start: 20010808
  6. CLEANAL [Concomitant]
     Indication: ASTHMA
     Dosage: 600MG
     Route: 048
     Dates: start: 20050824
  7. WARFARIN [Concomitant]
     Indication: THROMBOSIS PROPHYLAXIS
     Dosage: 2MG
     Route: 048
     Dates: start: 20120718
  8. RULID [Concomitant]
     Indication: ASTHMA
     Dosage: 150MG
     Route: 048
     Dates: start: 20090403
  9. HALCION [Concomitant]
     Indication: INSOMNIA
     Dosage: 0.25MG
     Route: 048
     Dates: start: 20030416
  10. FLUTIDE [Concomitant]
     Indication: ASTHMA
     Dosage: 200?G
     Dates: start: 20060607
  11. MEPTIN AIR [Concomitant]
     Indication: ASTHMA
  12. UNIPHYLLA [Concomitant]
     Indication: ASTHMA
     Dosage: 400MG
     Route: 048
     Dates: start: 20120403
  13. SINGULAIR [Concomitant]
     Indication: ASTHMA
     Dosage: 10MG
     Route: 048
     Dates: start: 20120403
  14. VENETLIN [Concomitant]
     Dosage: UNK
     Dates: start: 20130108

REACTIONS (2)
  - Bronchitis [Not Recovered/Not Resolved]
  - Asthma [Not Recovered/Not Resolved]
